FAERS Safety Report 8237362-3 (Version None)
Quarter: 2012Q1

REPORT INFORMATION
  Report Type: 
  Country: None (occurrence: None)
  Receive Date: 20120309
  Receipt Date: 20101129
  Transmission Date: 20120608
  Serious: Yes (Other)
  Sender: FDA-Public Use
  Company Number: PHHY2010US67832

PATIENT
  Age: 49 Year
  Sex: Female

DRUGS (6)
  1. EXTAVIA [Suspect]
     Indication: MULTIPLE SCLEROSIS
     Dosage: 0.25 MG, QOD, SUBCUTANEOUS
     Route: 058
     Dates: start: 20100105
  2. PROVIGIL [Concomitant]
  3. VITAMIN B12 [Concomitant]
  4. VITAMIN D [Concomitant]
  5. LORAZEPAM [Concomitant]
  6. NAPROXEN (ALEVE) [Concomitant]

REACTIONS (8)
  - MULTIPLE SCLEROSIS RELAPSE [None]
  - INJECTION SITE ERYTHEMA [None]
  - BALANCE DISORDER [None]
  - FATIGUE [None]
  - MUSCULAR WEAKNESS [None]
  - COUGH [None]
  - NASOPHARYNGITIS [None]
  - GAIT DISTURBANCE [None]
